FAERS Safety Report 17164188 (Version 2)
Quarter: 2019Q4

REPORT INFORMATION
  Report Type: Spontaneous
  Country: ES (occurrence: ES)
  Receive Date: 20191217
  Receipt Date: 20191218
  Transmission Date: 20200122
  Serious: Yes (Hospitalization, Other)
  Sender: FDA-Public Use
  Company Number: ES-PFIZER INC-2019534011

PATIENT
  Age: 77 Year
  Sex: Male
  Weight: 60 kg

DRUGS (9)
  1. THEOPHYLLINE [Suspect]
     Active Substance: THEOPHYLLINE ANHYDROUS
     Dosage: 200 MG, 2X/DAY(EVERY 12 HOURS)
  2. SALBUTAMOL [Suspect]
     Active Substance: ALBUTEROL
     Dosage: 100 UG, AS NEEDED
  3. ATORVASTATIN CALCIUM. [Suspect]
     Active Substance: ATORVASTATIN CALCIUM
     Dosage: 80 MG, DAILY (EVERY 24 HOURS)
  4. SALMETEROL [Suspect]
     Active Substance: SALMETEROL
     Dosage: 125 MG, 2X/DAY (EVERY 12 HOURS)
  5. ACETAMINOPHEN. [Suspect]
     Active Substance: ACETAMINOPHEN
     Dosage: 1 G, AS NEEDED
  6. SALMETEROL [Suspect]
     Active Substance: SALMETEROL
     Dosage: 25 MG, 2X/DAY (EVERY 12 HOURS)
  7. DOMPERIDONE [Suspect]
     Active Substance: DOMPERIDONE
     Dosage: 10 MG, 3X/DAY (EVERY 8 HOURS)
  8. ACETYLSALICYLIC ACID [Suspect]
     Active Substance: ASPIRIN
     Dosage: 100 MG, 1X/DAY (EVERY 24 HOURS)
  9. OMEPRAZOLE. [Suspect]
     Active Substance: OMEPRAZOLE
     Dosage: 20 MG, 1X/DAY (EVERY 24 HOURS)

REACTIONS (1)
  - Inappropriate antidiuretic hormone secretion [Recovered/Resolved]
